FAERS Safety Report 9919715 (Version 1)
Quarter: 2014Q1

REPORT INFORMATION
  Report Type: Spontaneous
  Country: DE (occurrence: DE)
  Receive Date: 20140224
  Receipt Date: 20140224
  Transmission Date: 20141002
  Serious: Yes (Congenital Anomaly, Other)
  Sender: FDA-Public Use
  Company Number: DE-TEVA-462324GER

PATIENT
  Age: 1 Day
  Sex: Male

DRUGS (5)
  1. DOMINAL FORTE [Suspect]
     Route: 064
  2. CITALOPRAM [Suspect]
     Route: 064
  3. AMITRIPTYLIN [Suspect]
     Route: 064
  4. LYRICA [Suspect]
     Route: 064
  5. TAVOR [Suspect]
     Route: 064

REACTIONS (2)
  - Pulmonary artery stenosis congenital [Unknown]
  - Agitation neonatal [Recovered/Resolved]
